FAERS Safety Report 21668756 (Version 1)
Quarter: 2022Q4

REPORT INFORMATION
  Report Type: Spontaneous
  Country: JP (occurrence: JP)
  Receive Date: 20221201
  Receipt Date: 20221201
  Transmission Date: 20230113
  Serious: Yes (Death, Other)
  Sender: FDA-Public Use
  Company Number: JP-GILEAD-2022-0606874

PATIENT
  Age: 79 Year
  Sex: Male

DRUGS (3)
  1. VEKLURY [Suspect]
     Active Substance: REMDESIVIR
     Indication: COVID-19
     Dosage: 100 MG
     Route: 065
     Dates: start: 20221107, end: 20221107
  2. VEKLURY [Suspect]
     Active Substance: REMDESIVIR
     Dosage: 100 MG
     Route: 065
     Dates: start: 20221110, end: 20221110
  3. VEKLURY [Suspect]
     Active Substance: REMDESIVIR
     Dosage: 100 MG
     Route: 065
     Dates: start: 20221112, end: 20221112

REACTIONS (3)
  - Pneumonia aspiration [Fatal]
  - Product preparation error [Recovered/Resolved]
  - Off label use [Recovered/Resolved]

NARRATIVE: CASE EVENT DATE: 20221107
